FAERS Safety Report 6470041-1 (Version None)
Quarter: 2009Q4

REPORT INFORMATION
  Report Type: 
  Country: None (occurrence: None)
  Receive Date: 20091203
  Receipt Date: 20071105
  Transmission Date: 20100525
  Serious: Yes (Hospitalization)
  Sender: FDA-Public Use
  Company Number: US-ELI_LILLY_AND_COMPANY-US200711001017

PATIENT
  Sex: Female
  Weight: 126.98 kg

DRUGS (30)
  1. BYETTA [Suspect]
     Indication: TYPE 1 DIABETES MELLITUS
     Dosage: 5 UG, 2/D
     Route: 058
     Dates: start: 20070501, end: 20070701
  2. BYETTA [Suspect]
     Dosage: 10 UG, 2/D
     Route: 058
     Dates: start: 20070701, end: 20070101
  3. BYETTA [Suspect]
     Dosage: 10 UG, 2/D
     Route: 058
     Dates: start: 20070101
  4. GLUCOTROL [Concomitant]
     Indication: TYPE 1 DIABETES MELLITUS
     Dosage: UNK, UNKNOWN
     Dates: end: 20070101
  5. GLUCOTROL [Concomitant]
     Dosage: UNK, UNKNOWN
     Dates: start: 20070101
  6. GLUCOPHAGE [Concomitant]
     Indication: TYPE 1 DIABETES MELLITUS
     Dosage: 1000 MG, 2/D
     Route: 048
     Dates: end: 20070101
  7. GLUCOPHAGE [Concomitant]
     Dosage: 1000 MG, 2/D
     Route: 048
     Dates: start: 20070101
  8. ACTOS [Concomitant]
     Indication: TYPE 1 DIABETES MELLITUS
     Dosage: 45 MG, DAILY (1/D)
     Route: 048
     Dates: end: 20070101
  9. ACTOS [Concomitant]
     Dosage: 45 MG, DAILY (1/D)
     Route: 048
     Dates: start: 20070101
  10. NPH INSULIN [Concomitant]
     Indication: TYPE 1 DIABETES MELLITUS
     Dosage: 20 U, EACH EVENING
     Route: 058
     Dates: end: 20070801
  11. NPH INSULIN [Concomitant]
     Dosage: 35 U, 2/D
     Route: 058
     Dates: start: 20070801, end: 20070101
  12. NPH INSULIN [Concomitant]
     Dosage: 35 U, 2/D
     Route: 058
     Dates: start: 20070101
  13. KLONOPIN [Concomitant]
     Dosage: 1.5 MG, DAILY (1/D)
     Route: 048
     Dates: end: 20070101
  14. KLONOPIN [Concomitant]
     Dosage: 1.5 MG, DAILY (1/D)
     Route: 048
     Dates: start: 20070101
  15. NEURONTIN [Concomitant]
     Dosage: 300 MG, DAILY (1/D)
     Route: 048
     Dates: end: 20070101
  16. NEURONTIN [Concomitant]
     Dosage: 300 MG, DAILY (1/D)
     Route: 048
     Dates: start: 20070101
  17. PAXIL [Concomitant]
     Dosage: 20 MG, DAILY (1/D)
     Route: 048
     Dates: end: 20070101
  18. PAXIL [Concomitant]
     Dosage: 20 MG, DAILY (1/D)
     Route: 048
     Dates: start: 20070101
  19. SEROQUEL [Concomitant]
     Dosage: 800 MG, DAILY (1/D)
     Route: 048
     Dates: end: 20070101
  20. SEROQUEL [Concomitant]
     Dosage: 800 MG, DAILY (1/D)
     Route: 048
     Dates: start: 20070101
  21. TOPAMAX [Concomitant]
     Dosage: 300 MG, 2/D
     Route: 048
     Dates: end: 20070101
  22. TOPAMAX [Concomitant]
     Dosage: 300 MG, 2/D
     Route: 048
     Dates: start: 20070101
  23. DEPAKOTE [Concomitant]
     Dosage: 500 MG, EACH MORNING
     Route: 048
     Dates: end: 20070101
  24. DEPAKOTE [Concomitant]
     Dosage: 1000 MG, EACH EVENING
     Route: 048
     Dates: end: 20070101
  25. DEPAKOTE [Concomitant]
     Dosage: 500 MG, EACH MORNING
     Route: 048
     Dates: start: 20070101
  26. DEPAKOTE [Concomitant]
     Dosage: 1000 MG, EACH EVENING
     Route: 048
     Dates: start: 20070101
  27. SYNTHROID [Concomitant]
     Indication: GOITRE
     Dosage: UNK, UNKNOWN
     Dates: end: 20070101
  28. SYNTHROID [Concomitant]
     Dates: start: 20070101
  29. CYTOMEL [Concomitant]
     Dosage: 5 UG, DAILY (1/D)
     Route: 048
     Dates: end: 20070101
  30. CYTOMEL [Concomitant]
     Dosage: 5 UG, DAILY (1/D)
     Route: 048
     Dates: start: 20070101

REACTIONS (6)
  - CONVULSION [None]
  - INTENTIONAL OVERDOSE [None]
  - MOBILITY DECREASED [None]
  - OVERDOSE [None]
  - SCHIZOPHRENIA [None]
  - WEIGHT DECREASED [None]
